FAERS Safety Report 16148970 (Version 7)
Quarter: 2020Q1

REPORT INFORMATION
  Report Type: Report from Study
  Country: EG (occurrence: EG)
  Receive Date: 20190402
  Receipt Date: 20200109
  Transmission Date: 20200409
  Serious: Yes (Other)
  Sender: FDA-Public Use
  Company Number: EG-SEATTLE GENETICS-2019SGN00930

PATIENT
  Sex: Male

DRUGS (3)
  1. BRENTUXIMAB VEDOTIN-MPI [Suspect]
     Active Substance: BRENTUXIMAB VEDOTIN
     Indication: ANAPLASTIC LARGE CELL LYMPHOMA T- AND NULL-CELL TYPES
     Dosage: UNK
     Route: 042
     Dates: start: 20190217
  2. VITAMIN B [Concomitant]
     Active Substance: VITAMIN B
     Dosage: UNK
     Route: 065
  3. CARBAMID [Concomitant]
     Dosage: UNK
     Route: 065

REACTIONS (4)
  - Influenza [Unknown]
  - Diarrhoea [Unknown]
  - Cutaneous T-cell lymphoma [Unknown]
  - Neuropathy peripheral [Not Recovered/Not Resolved]
